FAERS Safety Report 5089319-1 (Version None)
Quarter: 2006Q3

REPORT INFORMATION
  Report Type: 
  Country: None (occurrence: None)
  Receive Date: 20060822
  Receipt Date: 20060731
  Transmission Date: 20061208
  Serious: Yes (Other)
  Sender: FDA-Public Use
  Company Number: US200608000136

PATIENT
  Age: 18 Year
  Sex: Female
  Weight: 47.6 kg

DRUGS (1)
  1. STRATTERA [Suspect]
     Indication: ATTENTION DEFICIT/HYPERACTIVITY DISORDER
     Dosage: 60 MG, DAILY (1/D)
     Dates: start: 20020101

REACTIONS (3)
  - AMNESIA [None]
  - PERSONALITY CHANGE [None]
  - SELF INJURIOUS BEHAVIOUR [None]
